FAERS Safety Report 14298689 (Version 5)
Quarter: 2018Q1

REPORT INFORMATION
  Report Type: Spontaneous
  Country: US (occurrence: US)
  Receive Date: 20171218
  Receipt Date: 20180305
  Transmission Date: 20180509
  Serious: Yes (Hospitalization, Other)
  Sender: FDA-Public Use
  Company Number: US-ALLERGAN-1767076US

PATIENT
  Age: 85 Year
  Sex: Male

DRUGS (8)
  1. VALIUM [Suspect]
     Active Substance: DIAZEPAM
     Indication: ANXIETY
  2. VALIUM [Suspect]
     Active Substance: DIAZEPAM
     Indication: MENTAL STATUS CHANGES
     Dosage: 2.5 MG, UNK
     Route: 042
     Dates: start: 20171113, end: 20171113
  3. ASPIRIN. [Concomitant]
     Active Substance: ASPIRIN
     Indication: PRODUCT USED FOR UNKNOWN INDICATION
     Route: 065
  4. NORVASC [Concomitant]
     Active Substance: AMLODIPINE BESYLATE
     Indication: PRODUCT USED FOR UNKNOWN INDICATION
     Dosage: 10 MG, QD
     Route: 065
  5. NEURONTIN [Concomitant]
     Active Substance: GABAPENTIN
     Indication: PRODUCT USED FOR UNKNOWN INDICATION
     Dosage: 300 MG, TID
     Route: 065
  6. DALVANCE [Suspect]
     Active Substance: DALBAVANCIN
     Indication: CELLULITIS
     Dosage: 1500 MG, SINGLE
     Route: 042
     Dates: start: 20171113, end: 20171113
  7. VALIUM [Suspect]
     Active Substance: DIAZEPAM
     Indication: NERVOUSNESS
  8. LUMIGAN [Concomitant]
     Active Substance: BIMATOPROST
     Indication: PRODUCT USED FOR UNKNOWN INDICATION
     Dosage: 1 GTT, QHS
     Route: 047

REACTIONS (10)
  - Metabolic encephalopathy [Unknown]
  - Lactic acidosis [Unknown]
  - Leukocytosis [Unknown]
  - Hypertension [Unknown]
  - Mental status changes [Recovered/Resolved]
  - Unresponsive to stimuli [Recovered/Resolved]
  - Tremor [Recovered/Resolved]
  - Loss of consciousness [Recovered/Resolved]
  - Anxiety [Recovered/Resolved]
  - Drug hypersensitivity [Unknown]

NARRATIVE: CASE EVENT DATE: 20171113
